FAERS Safety Report 19443120 (Version 2)
Quarter: 2021Q3

REPORT INFORMATION
  Report Type: Other
  Country: US (occurrence: US)
  Receive Date: 20210621
  Receipt Date: 20210921
  Transmission Date: 20211014
  Serious: No
  Sender: FDA-Public Use
  Company Number: US-ACORDA-ACO_168928_2021

PATIENT
  Age: 73 Year
  Sex: Male

DRUGS (7)
  1. CARBIDOPA/LEVODOPA [Concomitant]
     Active Substance: CARBIDOPA\LEVODOPA
     Indication: PRODUCT USED FOR UNKNOWN INDICATION
     Dosage: 25?100 MG: 1.5 TABLETS 4X DAY
     Route: 065
  2. CARBIDOPA/LEVODOPA [Concomitant]
     Active Substance: CARBIDOPA\LEVODOPA
     Dosage: 25/100 MG: 1 CAPSULE 4X/DAY
     Route: 065
  3. KYNMOBI [Concomitant]
     Active Substance: APOMORPHINE HYDROCHLORIDE
     Indication: PRODUCT USED FOR UNKNOWN INDICATION
     Dosage: UNK
     Route: 065
  4. INBRIJA [Suspect]
     Active Substance: LEVODOPA
     Indication: PARKINSON^S DISEASE
     Dosage: 84 MILLIGRAM, AS DIRECTED, PRN (NOT TO EXCEED 5 DOSES A DAY)
     Dates: start: 20210323
  5. INBRIJA [Suspect]
     Active Substance: LEVODOPA
     Indication: ON AND OFF PHENOMENON
  6. TRIMETHOBENZAMIDE [Concomitant]
     Active Substance: TRIMETHOBENZAMIDE
     Indication: PRODUCT USED FOR UNKNOWN INDICATION
     Dosage: UNK
     Route: 065
  7. CARBIDOPA/LEVODOPA [Concomitant]
     Active Substance: CARBIDOPA\LEVODOPA
     Dosage: 25/50 MG (FREQUENCY UNKNOWN)
     Route: 065

REACTIONS (12)
  - Product cleaning inadequate [Unknown]
  - Cognitive disorder [Not Recovered/Not Resolved]
  - Delusion [Not Recovered/Not Resolved]
  - Device occlusion [Unknown]
  - Device difficult to use [Unknown]
  - Therapeutic product effect variable [Unknown]
  - Device issue [Unknown]
  - Hallucination [Not Recovered/Not Resolved]
  - Wrong technique in device usage process [Unknown]
  - Salivary hypersecretion [Unknown]
  - Product physical issue [Unknown]
  - Cough [Not Recovered/Not Resolved]

NARRATIVE: CASE EVENT DATE: 20210301
